FAERS Safety Report 8922659 (Version 3)
Quarter: 2012Q4

REPORT INFORMATION
  Report Type: 
  Country: JP (occurrence: JP)
  Receive Date: 20121123
  Receipt Date: 20121228
  Transmission Date: 20130627
  Serious: Yes (Other)
  Sender: FDA-Public Use
  Company Number: JP-PFIZER INC-2012291627

PATIENT
  Age: 45 Year
  Sex: Male

DRUGS (8)
  1. NORVASC [Suspect]
     Indication: HYPERTENSION
     Dosage: 5 mg, 1x/day
     Route: 048
     Dates: end: 20041020
  2. NEORAL [Suspect]
     Indication: RENAL TRANSPLANT
     Dosage: 200 mg, 1x/day
  3. CARDENALIN [Concomitant]
     Indication: HYPERTENSION
     Dosage: 2 mg, 1x/day
  4. AMARYL [Concomitant]
     Indication: DIABETES MELLITUS
     Dosage: 1 mg, 1x/day
  5. MEDROL [Concomitant]
     Indication: RENAL TRANSPLANT
     Dosage: 12 mg, 1x/day
  6. CELLCEPT [Concomitant]
     Dosage: 1500 mg, 1x/day
  7. ULGUT [Concomitant]
     Dosage: 800 mg, 1x/day
  8. GASTER [Concomitant]
     Dosage: 20 mg, 1x/day

REACTIONS (1)
  - Gingival hyperplasia [Recovered/Resolved]
